FAERS Safety Report 15960827 (Version 4)
Quarter: 2019Q4

REPORT INFORMATION
  Report Type: Spontaneous
  Country: US (occurrence: US)
  Receive Date: 20190214
  Receipt Date: 20191231
  Transmission Date: 20200122
  Serious: No
  Sender: FDA-Public Use
  Company Number: US-PFIZER INC-2018065875

PATIENT
  Age: 12 Year
  Sex: Male

DRUGS (1)
  1. GENOTROPIN [Suspect]
     Active Substance: SOMATROPIN
     Indication: GROWTH HORMONE DEFICIENCY
     Dosage: 2.2 MG, DAILY

REACTIONS (5)
  - Bone density increased [Unknown]
  - Device breakage [Unknown]
  - Poor quality device used [Unknown]
  - Product dose omission [Unknown]
  - Insulin-like growth factor increased [Unknown]

NARRATIVE: CASE EVENT DATE: 20180922
